FAERS Safety Report 9377277 (Version 2)
Quarter: 2014Q1

REPORT INFORMATION
  Report Type: Spontaneous
  Country: IL (occurrence: IL)
  Receive Date: 20130701
  Receipt Date: 20140305
  Transmission Date: 20141002
  Serious: Yes (Hospitalization, Other)
  Sender: FDA-Public Use
  Company Number: IL-VERTEX PHARMACEUTICALS INC-2013-007579

PATIENT
  Age: 61 Year
  Sex: Female
  Weight: 31.66 kg

DRUGS (6)
  1. INCIVO [Suspect]
     Indication: HEPATITIS C
     Dosage: 2250 MG, QD
     Route: 048
     Dates: start: 20120803, end: 20121010
  2. INCIVO [Suspect]
     Dosage: UNK
     Route: 048
     Dates: start: 20121203
  3. PEGINTERFERON ALFA 2A [Suspect]
     Indication: HEPATITIS C
     Dosage: 135 UNK, UNK
     Route: 058
     Dates: start: 20120803, end: 20121010
  4. PEGINTERFERON ALFA 2A [Suspect]
     Dosage: 135 UNK, UNK
     Route: 058
     Dates: start: 20121203
  5. RIBAVIRIN [Suspect]
     Indication: HEPATITIS C
     Dosage: 800 MG, QD
     Route: 048
     Dates: start: 20120803, end: 20121010
  6. RIBAVIRIN [Suspect]
     Dosage: DOSAGE FORM: TABLET
     Route: 048
     Dates: start: 20121203

REACTIONS (2)
  - Pyrexia [Recovered/Resolved]
  - Anaemia [Recovered/Resolved]
